FAERS Safety Report 8267691-9 (Version None)
Quarter: 2012Q2

REPORT INFORMATION
  Report Type: 
  Country: None (occurrence: None)
  Receive Date: 20120404
  Receipt Date: 20120319
  Transmission Date: 20120825
  Serious: Yes (Hospitalization, Other)
  Sender: FDA-Public Use
  Company Number: 2012P1010258

PATIENT
  Age: 52 Year
  Sex: Female

DRUGS (4)
  1. LITHIUM CARBONATE [Suspect]
     Indication: SCHIZOAFFECTIVE DISORDER
     Dosage: 900 MG;QD
  2. TELMISARTAN [Suspect]
     Indication: HYPERTENSION
     Dosage: 40 MG;QD
     Dates: start: 20080201
  3. BISOPROLOL FUMARATE [Concomitant]
  4. HALOPERIDOL [Concomitant]

REACTIONS (5)
  - VOMITING [None]
  - TOXICITY TO VARIOUS AGENTS [None]
  - DIARRHOEA [None]
  - ALTERED STATE OF CONSCIOUSNESS [None]
  - NAUSEA [None]
